FAERS Safety Report 5532283-9 (Version None)
Quarter: 2007Q4

REPORT INFORMATION
  Report Type: 
  Country: None (occurrence: None)
  Receive Date: 20071203
  Receipt Date: 20071120
  Transmission Date: 20080405
  Serious: Yes (Hospitalization)
  Sender: FDA-Public Use
  Company Number: US-ELI_LILLY_AND_COMPANY-US200711004944

PATIENT
  Sex: Female

DRUGS (1)
  1. FORTEO [Suspect]
     Dates: start: 20070401

REACTIONS (1)
  - KNEE OPERATION [None]
